FAERS Safety Report 4492271-0 (Version None)
Quarter: 2004Q4

REPORT INFORMATION
  Report Type: 
  Country: None (occurrence: None)
  Receive Date: 20041103
  Receipt Date: 20041025
  Transmission Date: 20050328
  Serious: Yes (Life-Threatening, Hospitalization)
  Sender: FDA-Public Use
  Company Number: US-MERCK-0410USA03802

PATIENT
  Age: 50 Year
  Sex: Male

DRUGS (5)
  1. VIOXX [Suspect]
     Indication: ARTHRITIS
     Route: 048
     Dates: start: 19990101, end: 20020101
  2. VIOXX [Suspect]
     Route: 048
     Dates: start: 20020101, end: 20020101
  3. VIOXX [Suspect]
     Indication: JOINT SURGERY
     Route: 048
     Dates: start: 19990101, end: 20020101
  4. VIOXX [Suspect]
     Route: 048
     Dates: start: 20020101, end: 20020101
  5. NITRO [Concomitant]
     Route: 065

REACTIONS (2)
  - CARDIAC DISORDER [None]
  - CHEST PAIN [None]
